FAERS Safety Report 9975536 (Version 2)
Quarter: 2014Q3

REPORT INFORMATION
  Report Type: Spontaneous
  Country: JP (occurrence: JP)
  Receive Date: 20140306
  Receipt Date: 20140815
  Transmission Date: 20150326
  Serious: Yes (Hospitalization)
  Sender: FDA-Public Use
  Company Number: PHHY2014JP024475

PATIENT
  Age: 54 Year
  Sex: Female

DRUGS (2)
  1. FENTANYL. [Concomitant]
     Active Substance: FENTANYL
     Dosage: 200 MG/DAY
     Route: 042
  2. SANDOSTATIN LAR DEPOT [Suspect]
     Active Substance: OCTREOTIDE ACETATE
     Indication: INTESTINAL OBSTRUCTION
     Dosage: 400 MG/DAY
     Route: 042

REACTIONS (8)
  - Abdominal pain upper [Unknown]
  - Back pain [Unknown]
  - Heart rate increased [Unknown]
  - White blood cell count increased [Unknown]
  - Blood pressure decreased [Unknown]
  - Neutrophil count increased [Unknown]
  - Gastrointestinal disorder [Unknown]
  - Portal venous gas [Recovering/Resolving]
